FAERS Safety Report 13708198 (Version 1)
Quarter: 2017Q2

REPORT INFORMATION
  Report Type: Report from Study
  Country: US (occurrence: BR)
  Receive Date: 20170630
  Receipt Date: 20170630
  Transmission Date: 20170830
  Serious: Yes (Life-Threatening, Other)
  Sender: FDA-Public Use
  Company Number: US-SUNOVION-2017SUN002771

PATIENT
  Sex: Female
  Weight: 59 kg

DRUGS (12)
  1. INDACATEROL [Suspect]
     Active Substance: INDACATEROL
     Indication: FATIGUE
     Dosage: 150 ?G, QD (30 CAPUSLES)
     Route: 055
  2. SINVASTATINA [Concomitant]
     Active Substance: SIMVASTATIN
  3. INDACATEROL [Suspect]
     Active Substance: INDACATEROL
     Indication: CHEST DISCOMFORT
  4. ATENSINA [Concomitant]
     Active Substance: CLONIDINE
  5. INDACATEROL [Suspect]
     Active Substance: INDACATEROL
     Indication: DYSPNOEA
     Dosage: 150 ?G, QD
     Route: 055
     Dates: start: 2013
  6. INDACATEROL [Suspect]
     Active Substance: INDACATEROL
     Indication: RESPIRATORY FAILURE
  7. RANITIDINE. [Concomitant]
     Active Substance: RANITIDINE
  8. CARVEDIOL [Concomitant]
     Active Substance: CARVEDILOL
  9. SUSTRATE [Concomitant]
     Active Substance: PROPATYL NITRATE
  10. INDACATEROL [Suspect]
     Active Substance: INDACATEROL
     Indication: BRONCHIAL OBSTRUCTION
     Dosage: 150 ?G, QD
     Route: 055
  11. INDACATEROL [Suspect]
     Active Substance: INDACATEROL
     Indication: TRACHEAL OBSTRUCTION
     Dosage: 150 ?G, QD
     Route: 055
     Dates: start: 2015
  12. DILTIAZEM. [Concomitant]
     Active Substance: DILTIAZEM

REACTIONS (10)
  - Drug use disorder [Unknown]
  - Micturition urgency [Unknown]
  - Dyspnoea [Recovered/Resolved]
  - Product use in unapproved indication [Unknown]
  - Fear [Unknown]
  - Choking [Unknown]
  - Osteoporosis [Recovering/Resolving]
  - Pain [Unknown]
  - Disturbance in attention [Unknown]
  - Feeling abnormal [Unknown]

NARRATIVE: CASE EVENT DATE: 2016
